FAERS Safety Report 8890582 (Version 2)
Quarter: 2012Q4

REPORT INFORMATION
  Report Type: 
  Country: JP (occurrence: JP)
  Receive Date: 20121107
  Receipt Date: 20121120
  Transmission Date: 20130627
  Serious: No
  Sender: FDA-Public Use
  Company Number: JP-UCBSA-070235

PATIENT

DRUGS (2)
  1. E KEPPRA [Suspect]
     Route: 048
  2. TEMODAL [Concomitant]
     Dosage: DOSE UNKNOWN
     Route: 048

REACTIONS (1)
  - Neutropenia [Recovered/Resolved]
